FAERS Safety Report 5089388-9 (Version None)
Quarter: 2006Q3

REPORT INFORMATION
  Report Type: 
  Country: None (occurrence: None)
  Receive Date: 20060727
  Receipt Date: 20060510
  Transmission Date: 20061208
  Serious: Yes (Other)
  Sender: FDA-Public Use
  Company Number: 2006063575

PATIENT
  Sex: Female

DRUGS (3)
  1. LYRICA [Suspect]
     Indication: ABDOMINAL PAIN LOWER
     Dosage: 150 MG (75 MG, 2 IN 1 D), ORAL
     Route: 048
  2. LUNESTA [Suspect]
     Indication: ILL-DEFINED DISORDER
  3. FLUOXETINE [Concomitant]

REACTIONS (2)
  - FACE INJURY [None]
  - UNEVALUABLE EVENT [None]
